FAERS Safety Report 6526290-7 (Version None)
Quarter: 2009Q4

REPORT INFORMATION
  Report Type: 
  Country: None (occurrence: None)
  Receive Date: 20091222
  Receipt Date: 20091214
  Transmission Date: 20100525
  Serious: Yes (Death)
  Sender: FDA-Public Use
  Company Number: 2009US004437

PATIENT
  Age: 38 Year
  Sex: Male

DRUGS (6)
  1. PROGRAF [Suspect]
     Indication: RENAL TRANSPLANT
     Dosage: 4 MG, UID/QD, ORAL
     Route: 048
     Dates: start: 20090201, end: 20091001
  2. MYCOPHENOLATE MOFETIL [Concomitant]
  3. TRIMETHOPRIM [Concomitant]
  4. METOPROLOL TARTRATE [Concomitant]
  5. AMLODIPINE [Concomitant]
  6. PREDNISOLONE (PREDNISOLONE SODIUM PHOSPHATE) [Concomitant]

REACTIONS (1)
  - RESPIRATORY ARREST [None]
